FAERS Safety Report 10971085 (Version 2)
Quarter: 2015Q2

REPORT INFORMATION
  Report Type: Spontaneous
  Country: US (occurrence: US)
  Receive Date: 20150331
  Receipt Date: 20150410
  Transmission Date: 20150821
  Serious: Yes (Hospitalization)
  Sender: FDA-Public Use
  Company Number: PHEH2015US006058

PATIENT
  Age: 36 Year
  Sex: Female

DRUGS (3)
  1. GILENYA [Suspect]
     Active Substance: FINGOLIMOD HYDROCHLORIDE
     Indication: RELAPSING-REMITTING MULTIPLE SCLEROSIS
     Dosage: 0.5 MG, QD
     Route: 048
  2. BACLOFEN. [Suspect]
     Active Substance: BACLOFEN
     Indication: PAIN
     Route: 065
  3. ANTIEPILEPTICS [Suspect]
     Active Substance: UNSPECIFIED INGREDIENT
     Indication: PAIN
     Route: 065

REACTIONS (2)
  - Maternal exposure during pregnancy [Unknown]
  - Abortion spontaneous [Unknown]

NARRATIVE: CASE EVENT DATE: 201406
